FAERS Safety Report 11492880 (Version 1)
Quarter: 2015Q3

REPORT INFORMATION
  Report Type: Spontaneous
  Country: CN (occurrence: CN)
  Receive Date: 20150911
  Receipt Date: 20150911
  Transmission Date: 20151125
  Serious: Yes (Other)
  Sender: FDA-Public Use
  Company Number: CN-ASTRAZENECA-2015SE85757

PATIENT
  Age: 21232 Day
  Sex: Male
  Weight: 55 kg

DRUGS (1)
  1. BUDESONIDE. [Suspect]
     Active Substance: BUDESONIDE
     Indication: DRUG THERAPY
     Route: 055
     Dates: start: 20140722, end: 20140728

REACTIONS (4)
  - Asthma [Unknown]
  - Lung cancer metastatic [Unknown]
  - Pharyngeal erythema [Recovered/Resolved]
  - Laryngitis [Recovering/Resolving]

NARRATIVE: CASE EVENT DATE: 20140728
